FAERS Safety Report 7962734-1 (Version None)
Quarter: 2011Q4

REPORT INFORMATION
  Report Type: 
  Country: None (occurrence: None)
  Receive Date: 20111207
  Receipt Date: 20111130
  Transmission Date: 20120403
  Serious: Yes (Other)
  Sender: FDA-Public Use
  Company Number: PHHY2011CA097586

PATIENT
  Sex: Female

DRUGS (12)
  1. TRAMADOL HCL [Concomitant]
     Dosage: 1 DF, (325 MG- 37.5 MG)
  2. NELITROGENA [Concomitant]
     Dosage: UNK UKN, UNK
  3. WARFARIN SODIUM [Concomitant]
     Dosage: 2 MG, UNK
  4. LIPITOR [Concomitant]
     Dosage: 10 MG, UNK
  5. ZOLEDRONOC ACID [Suspect]
     Indication: OSTEOPOROSIS
     Dosage: 5 MG, UNK
     Route: 042
     Dates: start: 20101103
  6. FLOVENT [Concomitant]
     Dosage: UNK UKN, UNK
  7. AZITHROMYCIN [Concomitant]
     Dosage: UNK UKN, UNK
  8. BISOPROLOL [Concomitant]
     Dosage: 5 MG, UNK
  9. EURO-D [Concomitant]
     Dosage: 400 U, UNK
  10. AVAPRO [Concomitant]
     Dosage: 300 MG, UNK
  11. EPIPEN [Concomitant]
     Dosage: 1 MG/ML, UNK
  12. CALCIUM [Concomitant]
     Dosage: 500 MG, UNK

REACTIONS (6)
  - DIZZINESS [None]
  - NAUSEA [None]
  - FATIGUE [None]
  - GAIT DISTURBANCE [None]
  - PAIN IN EXTREMITY [None]
  - HEADACHE [None]
